FAERS Safety Report 5241119-5 (Version None)
Quarter: 2007Q1

REPORT INFORMATION
  Report Type: 
  Country: None (occurrence: None)
  Receive Date: 20070214
  Receipt Date: 20070214
  Transmission Date: 20070707
  Serious: Yes (Hospitalization)
  Sender: FDA-Public Use
  Company Number: None

PATIENT
  Age: 39 Year
  Sex: Male

DRUGS (1)
  1. PHOSPHOSODA FLAVOR NOT SPECIFIED [Suspect]
     Indication: CONSTIPATION
     Dosage: 45 ML; X1; PO
     Route: 048
     Dates: start: 20070131, end: 20070131

REACTIONS (7)
  - ABDOMINAL PAIN [None]
  - APPENDICECTOMY [None]
  - COLONIC OBSTRUCTION [None]
  - INCISION SITE COMPLICATION [None]
  - PURULENCE [None]
  - URINARY TRACT INFECTION [None]
  - VOMITING [None]
